FAERS Safety Report 6787499-0 (Version None)
Quarter: 2010Q2

REPORT INFORMATION
  Report Type: 
  Country: None (occurrence: None)
  Receive Date: 20100621
  Receipt Date: 20080425
  Transmission Date: 20101027
  Serious: Yes (Hospitalization)
  Sender: FDA-Public Use
  Company Number: LEO-2010-00487

PATIENT
  Sex: Female
  Weight: 2.48 kg

DRUGS (11)
  1. INNOHEP [Suspect]
     Indication: DRUG EXPOSURE DURING PREGNANCY
     Dosage: TRANSPLACENTAL
     Route: 064
     Dates: start: 20041117, end: 20060210
  2. HEPARIN [Concomitant]
  3. CO-DYDRAMOL (PARACETAMOL, DIHYDROCODEINE BITARTRATE) [Concomitant]
  4. MEPERIDINE HCL [Concomitant]
  5. CO-PROXAMOL (PARACETAMOL, DEXTROPROPOXYPHENE HYDROCHLORIDE) [Concomitant]
  6. DIAZEPAM [Concomitant]
  7. CYCLIZINE [Concomitant]
  8. FOLIC ACID [Concomitant]
  9. THIAMINE [Concomitant]
  10. ATOSIBAN [Concomitant]
  11. DEXAMETHASONE [Concomitant]

REACTIONS (2)
  - MATERNAL DRUGS AFFECTING FOETUS [None]
  - SMALL FOR DATES BABY [None]
